FAERS Safety Report 5798652-7 (Version None)
Quarter: 2008Q3

REPORT INFORMATION
  Report Type: 
  Country: None (occurrence: None)
  Receive Date: 20080702
  Receipt Date: 20080630
  Transmission Date: 20090109
  Serious: Yes (Other)
  Sender: FDA-Public Use
  Company Number: FR-BRISTOL-MYERS SQUIBB COMPANY-14247142

PATIENT
  Age: 86 Year
  Sex: Female

DRUGS (9)
  1. COUMADIN [Suspect]
     Indication: VENOUS THROMBOSIS LIMB
     Dates: start: 20080519
  2. PREVISCAN [Suspect]
     Indication: VENOUS THROMBOSIS LIMB
     Dates: start: 20080401, end: 20080430
  3. FRAXIPARINE [Suspect]
     Indication: VENOUS THROMBOSIS LIMB
     Dates: start: 20080430
  4. LISINOPRIL [Concomitant]
  5. DETENSIEL [Concomitant]
  6. GLUCOR [Concomitant]
  7. LANTUS [Concomitant]
  8. ELISOR [Concomitant]
  9. VALIUM [Concomitant]

REACTIONS (2)
  - DEFICIENCY ANAEMIA [None]
  - NEUTROPENIA [None]
